FAERS Safety Report 4981119-3 (Version None)
Quarter: 2006Q2

REPORT INFORMATION
  Report Type: 
  Country: None (occurrence: None)
  Receive Date: 20060424
  Receipt Date: 20060413
  Transmission Date: 20061013
  Serious: Yes (Hospitalization)
  Sender: FDA-Public Use
  Company Number: US-JNJFOC-20060403904

PATIENT
  Sex: Female
  Weight: 81.19 kg

DRUGS (9)
  1. DURAGESIC-100 [Suspect]
     Route: 062
  2. FOSAMAX [Concomitant]
     Indication: OSTEOPOROSIS
     Route: 048
  3. NEXIUM [Concomitant]
     Route: 048
  4. WELLBUTRIN [Concomitant]
     Indication: DEPRESSION
     Route: 048
  5. HYDROCHLORIDE [Concomitant]
     Indication: HYPERTENSION
     Route: 048
  6. CYMBALTA [Concomitant]
     Indication: PAIN
     Route: 048
  7. SYNTHROID [Concomitant]
     Indication: HYPERTHYROIDISM
     Route: 048
  8. IMURAN [Concomitant]
     Indication: MYASTHENIA GRAVIS
     Route: 048
  9. MESTINON [Concomitant]
     Indication: MYASTHENIA GRAVIS
     Route: 048

REACTIONS (1)
  - DYSPHAGIA [None]
